FAERS Safety Report 19781013 (Version 2)
Quarter: 2021Q3

REPORT INFORMATION
  Report Type: Report from Study
  Country: AR (occurrence: AR)
  Receive Date: 20210902
  Receipt Date: 20210917
  Transmission Date: 20211014
  Serious: Yes (Hospitalization)
  Sender: FDA-Public Use
  Company Number: NVSC2021AR195162

PATIENT
  Age: 62 Year
  Sex: Male

DRUGS (1)
  1. ENTRESTO [Suspect]
     Active Substance: SACUBITRIL\VALSARTAN
     Indication: CARDIAC FAILURE
     Dosage: 2 DF, QD (50 MG)
     Route: 065
     Dates: start: 2017

REACTIONS (10)
  - Decubitus ulcer [Unknown]
  - Urinary tract infection [Unknown]
  - Myopathy [Unknown]
  - COVID-19 [Unknown]
  - Pneumonia [Unknown]
  - Sepsis [Unknown]
  - Dysphagia [Unknown]
  - Movement disorder [Unknown]
  - Device related infection [Unknown]
  - Acute pulmonary oedema [Unknown]

NARRATIVE: CASE EVENT DATE: 2020
